FAERS Safety Report 16227614 (Version 2)
Quarter: 2019Q3

REPORT INFORMATION
  Report Type: Spontaneous
  Country: JP (occurrence: JP)
  Receive Date: 20190423
  Receipt Date: 20190809
  Transmission Date: 20191004
  Serious: Yes (Hospitalization)
  Sender: FDA-Public Use
  Company Number: JP-ASTRAZENECA-2019SE60143

PATIENT
  Age: 83 Year
  Sex: Female
  Weight: 36 kg

DRUGS (6)
  1. MAGMITT [Concomitant]
     Active Substance: MAGNESIUM OXIDE
     Indication: CONSTIPATION
     Route: 048
     Dates: start: 20160630
  2. THYRADIN S [Concomitant]
     Active Substance: LEVOTHYROXINE SODIUM
     Indication: HYPOTHYROIDISM
     Route: 048
     Dates: start: 20150116
  3. FURSULTIAMINE [Concomitant]
     Active Substance: FURSULTIAMINE
     Indication: VITAMIN B1 DEFICIENCY
     Route: 048
     Dates: start: 20170901
  4. AZOSEMIDE [Concomitant]
     Active Substance: AZOSEMIDE
     Indication: HYPOTHYROIDISM
     Route: 048
     Dates: start: 20181207
  5. TAGRISSO [Suspect]
     Active Substance: OSIMERTINIB
     Indication: NON-SMALL CELL LUNG CANCER
     Route: 048
     Dates: start: 20170428, end: 20190412
  6. TAGRISSO [Suspect]
     Active Substance: OSIMERTINIB
     Indication: NON-SMALL CELL LUNG CANCER
     Route: 048

REACTIONS (3)
  - Cardiac failure [Recovering/Resolving]
  - Off label use [Unknown]
  - Cardiomyopathy [Unknown]

NARRATIVE: CASE EVENT DATE: 20190407
